FAERS Safety Report 6933602-9 (Version None)
Quarter: 2010Q3

REPORT INFORMATION
  Report Type: 
  Country: None (occurrence: None)
  Receive Date: 20100820
  Receipt Date: 20100812
  Transmission Date: 20110219
  Serious: Yes (Hospitalization)
  Sender: FDA-Public Use
  Company Number: CN-JNJFOC-20100804575

PATIENT
  Age: 60 Year
  Sex: Female

DRUGS (3)
  1. SPORANOX [Suspect]
     Indication: BRONCHOPULMONARY ASPERGILLOSIS
     Route: 041
  2. MOXIFLOXACIN [Concomitant]
     Route: 065
  3. ALL OTHER THERAPEUTIC PRODUCTS [Concomitant]
     Indication: PRODUCT USED FOR UNKNOWN INDICATION
     Route: 065

REACTIONS (4)
  - ANAEMIA [None]
  - JAUNDICE [None]
  - RENAL IMPAIRMENT [None]
  - TRANSAMINASES INCREASED [None]
